FAERS Safety Report 6779892-7 (Version None)
Quarter: 2010Q2

REPORT INFORMATION
  Report Type: 
  Country: None (occurrence: None)
  Receive Date: 20100618
  Receipt Date: 20100607
  Transmission Date: 20101027
  Serious: Yes (Hospitalization, Other)
  Sender: FDA-Public Use
  Company Number: FR-PFIZER INC-2010061905

PATIENT
  Age: 36 Year
  Sex: Male
  Weight: 68.5 kg

DRUGS (1)
  1. CHAMPIX [Suspect]
     Indication: SMOKING CESSATION THERAPY
     Dosage: 1 MG, 2X/DAY
     Dates: start: 20100118, end: 20100315

REACTIONS (7)
  - ABNORMAL BEHAVIOUR [None]
  - AFFECTIVE DISORDER [None]
  - BRADYCARDIA [None]
  - BRIEF PSYCHOTIC DISORDER WITH MARKED STRESSORS [None]
  - DELIRIUM [None]
  - INSOMNIA [None]
  - PSYCHOMOTOR HYPERACTIVITY [None]
